FAERS Safety Report 5017509-2 (Version None)
Quarter: 2006Q2

REPORT INFORMATION
  Report Type: 
  Country: None (occurrence: None)
  Receive Date: 20060601
  Receipt Date: 20060601
  Transmission Date: 20061013
  Serious: Yes (Life-Threatening, Hospitalization)
  Sender: FDA-Public Use
  Company Number: None

PATIENT
  Age: 76 Year
  Sex: Male
  Weight: 53.5 kg

DRUGS (12)
  1. SIMVASTATIN [Suspect]
     Indication: HYPERLIPIDAEMIA
     Dosage: 80MG, 80MG DAI, ORAL
     Route: 048
     Dates: start: 20060111
  2. ALBUTEROL / IPRATROP [Concomitant]
  3. SIMVASTATIN [Concomitant]
  4. SULFAMETHOXAZOLE + TRIMETHOPRIM [Concomitant]
  5. CLOPIDOGREL BISULFATE [Concomitant]
  6. LANOXIN [Concomitant]
  7. FUROSEMIDE [Concomitant]
  8. METOPROLOL SUCCINATE [Concomitant]
  9. LISINOPRIL [Concomitant]
  10. NITROGLYCERIN [Concomitant]
  11. SYNTHROID [Concomitant]
  12. ISOSORBIDE MONONITRATE [Concomitant]

REACTIONS (3)
  - HEPATOTOXICITY [None]
  - MYOSITIS [None]
  - RENAL FAILURE [None]
